FAERS Safety Report 4882326-0 (Version None)
Quarter: 2006Q1

REPORT INFORMATION
  Report Type: 
  Country: None (occurrence: None)
  Receive Date: 20060117
  Receipt Date: 20060113
  Transmission Date: 20060701
  Serious: Yes (Death)
  Sender: FDA-Public Use
  Company Number: PHBS2006BR00895

PATIENT
  Age: 73 Year
  Sex: Female

DRUGS (5)
  1. SERTRALINE [Concomitant]
     Route: 065
  2. STALEVO 100 [Suspect]
     Indication: PARKINSON'S DISEASE
     Dosage: 100 MG, TID
     Route: 048
     Dates: start: 20060111
  3. SIFROL [Concomitant]
     Route: 065
  4. CARBIDOPA W/LEVODOPA [Concomitant]
     Route: 065
  5. PROPRANOLOL [Concomitant]
     Route: 065

REACTIONS (1)
  - RESPIRATORY FAILURE [None]
